FAERS Safety Report 11189648 (Version 2)
Quarter: 2015Q3

REPORT INFORMATION
  Report Type: Spontaneous
  Country: US (occurrence: US)
  Receive Date: 20150615
  Receipt Date: 20150918
  Transmission Date: 20151125
  Serious: Yes (Hospitalization)
  Sender: FDA-Public Use
  Company Number: US-DSJP-DSU-2015-105171

PATIENT

DRUGS (3)
  1. BENICAR HCT [Suspect]
     Active Substance: HYDROCHLOROTHIAZIDE\OLMESARTAN MEDOXOMIL
     Dosage: 40/25 MG, QD
     Route: 048
     Dates: start: 20110323, end: 20111231
  2. BENICAR HCT [Suspect]
     Active Substance: HYDROCHLOROTHIAZIDE\OLMESARTAN MEDOXOMIL
     Indication: HYPERTENSION
     Dosage: 40/12.5 MG, QD
     Route: 048
     Dates: start: 20090529
  3. BENICAR [Suspect]
     Active Substance: OLMESARTAN MEDOXOMIL
     Indication: HYPERTENSION
     Dosage: 40 MG, QD
     Route: 048
     Dates: start: 20111231, end: 20120524

REACTIONS (17)
  - Mucosal hyperaemia [Unknown]
  - Abdominal pain [Recovered/Resolved]
  - Metaplasia [Unknown]
  - Mucosal inflammation [Unknown]
  - Duodenal ulcer [Unknown]
  - Decreased appetite [Unknown]
  - Coeliac disease [Unknown]
  - Gastric disorder [Unknown]
  - Hiatus hernia [Unknown]
  - Dehydration [Recovered/Resolved]
  - Malabsorption [Unknown]
  - Inflammation [Unknown]
  - Polyp [Unknown]
  - Haemorrhoids [Unknown]
  - Duodenitis [Unknown]
  - Adenoma benign [Unknown]
  - Intestinal villi atrophy [Unknown]

NARRATIVE: CASE EVENT DATE: 201112
